FAERS Safety Report 5535413-8 (Version None)
Quarter: 2007Q4

REPORT INFORMATION
  Report Type: 
  Country: None (occurrence: None)
  Receive Date: 20071206
  Receipt Date: 20071127
  Transmission Date: 20080405
  Serious: Yes (Other)
  Sender: FDA-Public Use
  Company Number: ES-PFIZER INC-2007099625

PATIENT
  Age: 31 Year
  Sex: Female

DRUGS (5)
  1. ARTHROTEC [Suspect]
     Indication: INTERVERTEBRAL DISC PROTRUSION
     Route: 048
     Dates: start: 20070101, end: 20070925
  2. LYRICA [Suspect]
     Indication: INTERVERTEBRAL DISC PROTRUSION
     Route: 048
     Dates: start: 20070101, end: 20071008
  3. TRAMADOL HCL [Suspect]
     Indication: INTERVERTEBRAL DISC PROTRUSION
     Route: 048
     Dates: start: 20070101, end: 20070925
  4. PARACETAMOL [Suspect]
     Indication: INTERVERTEBRAL DISC PROTRUSION
     Route: 048
     Dates: start: 20070101, end: 20070925
  5. DIAZEPAM [Suspect]
     Indication: INTERVERTEBRAL DISC PROTRUSION
     Route: 048
     Dates: start: 20070101, end: 20071008

REACTIONS (1)
  - ABORTION SPONTANEOUS [None]
